FAERS Safety Report 6518736-5 (Version None)
Quarter: 2009Q4

REPORT INFORMATION
  Report Type: 
  Country: None (occurrence: None)
  Receive Date: 20091218
  Receipt Date: 20091210
  Transmission Date: 20100525
  Serious: No
  Sender: FDA-Public Use
  Company Number: TCI2009A05063

PATIENT
  Age: 62 Year
  Sex: Male

DRUGS (3)
  1. LANSOPRAZOLE [Suspect]
     Indication: GASTROINTESTINAL HAEMORRHAGE
     Dosage: PER ORAL
     Route: 048
     Dates: start: 20091015, end: 20091108
  2. LANSOPRAZOLE [Suspect]
     Indication: PROPHYLAXIS
     Dosage: PER ORAL
     Route: 048
     Dates: start: 20091015, end: 20091108
  3. PLAVIX [Concomitant]

REACTIONS (9)
  - DRUG ERUPTION [None]
  - DYSPHAGIA [None]
  - DYSPNOEA [None]
  - FACE OEDEMA [None]
  - LOCALISED OEDEMA [None]
  - OBSTRUCTIVE AIRWAYS DISORDER [None]
  - RASH GENERALISED [None]
  - RASH PRURITIC [None]
  - VOMITING [None]
